FAERS Safety Report 14129284 (Version 3)
Quarter: 2017Q4

REPORT INFORMATION
  Report Type: Spontaneous
  Country: AU (occurrence: AU)
  Receive Date: 20171026
  Receipt Date: 20171108
  Transmission Date: 20180321
  Serious: Yes (Other)
  Sender: FDA-Public Use
  Company Number: PHHY2017AU156238

PATIENT
  Age: 60 Year
  Sex: Female

DRUGS (1)
  1. ANASTROZOLE. [Suspect]
     Active Substance: ANASTROZOLE
     Indication: BREAST CANCER METASTATIC
     Route: 065
     Dates: end: 2011

REACTIONS (17)
  - Malignant pleural effusion [Unknown]
  - Metastases to bone [Unknown]
  - Glomerular filtration rate decreased [Unknown]
  - Low density lipoprotein increased [Unknown]
  - Blood phosphorus increased [Unknown]
  - Blood sodium decreased [Unknown]
  - Myocardial infarction [Unknown]
  - Blood triglycerides increased [Unknown]
  - Gamma-glutamyltransferase increased [Unknown]
  - Blood bicarbonate decreased [Unknown]
  - Blood cholesterol increased [Unknown]
  - Anion gap increased [Unknown]
  - Blood urea increased [Unknown]
  - Blood magnesium increased [Unknown]
  - Red cell distribution width increased [Unknown]
  - Breast neoplasm [Unknown]
  - Blood glucose increased [Unknown]

NARRATIVE: CASE EVENT DATE: 20090911
